FAERS Safety Report 17117352 (Version 3)
Quarter: 2019Q4

REPORT INFORMATION
  Report Type: Report from Study
  Country: US (occurrence: US)
  Receive Date: 20191205
  Receipt Date: 20191216
  Transmission Date: 20200122
  Serious: Yes (Hospitalization, Other)
  Sender: FDA-Public Use
  Company Number: US-ACTELION-A-US2019-193228

PATIENT
  Age: 68 Year
  Sex: Female
  Weight: 29.93 kg

DRUGS (2)
  1. OPSUMIT [Suspect]
     Active Substance: MACITENTAN
     Indication: PULMONARY ARTERIAL HYPERTENSION
     Dosage: 10 MG, QD
     Route: 048
  2. UPTRAVI [Suspect]
     Active Substance: SELEXIPAG
     Indication: PULMONARY ARTERIAL HYPERTENSION
     Dosage: 1600 MCG, BID
     Route: 048

REACTIONS (15)
  - Chronic obstructive pulmonary disease [Unknown]
  - Pulmonary pain [Unknown]
  - Diarrhoea [Unknown]
  - Renal pain [Unknown]
  - Urine output decreased [Unknown]
  - Constipation [Unknown]
  - Back pain [Unknown]
  - Bacterial infection [Unknown]
  - Sinusitis [Not Recovered/Not Resolved]
  - Malaise [Unknown]
  - Mastication disorder [Unknown]
  - Dyspnoea [Unknown]
  - Peripheral swelling [Unknown]
  - Pain in jaw [Unknown]
  - Abdominal discomfort [Unknown]

NARRATIVE: CASE EVENT DATE: 20190722
